FAERS Safety Report 5411203-1 (Version None)
Quarter: 2007Q3

REPORT INFORMATION
  Report Type: 
  Country: None (occurrence: None)
  Receive Date: 20070810
  Receipt Date: 20070731
  Transmission Date: 20080115
  Serious: Yes (Hospitalization)
  Sender: FDA-Public Use
  Company Number: B0430376A

PATIENT
  Age: 44 Year
  Sex: Male

DRUGS (7)
  1. LAMICTAL [Suspect]
     Indication: BIPOLAR DISORDER
     Route: 048
     Dates: start: 20060221, end: 20060307
  2. LEPONEX [Suspect]
     Route: 048
     Dates: start: 20060212, end: 20060407
  3. LORAZEPAM [Concomitant]
     Dosage: 4.5MG PER DAY
     Dates: start: 20060212, end: 20060322
  4. TAMSULOSIN HCL [Concomitant]
     Dosage: .4MG PER DAY
  5. DEPAKENE [Concomitant]
     Dosage: 2000MG PER DAY
  6. PSYCHOPAX [Concomitant]
     Dosage: 20MG PER DAY
  7. RISPERDAL [Concomitant]
     Dosage: 6MG PER DAY

REACTIONS (7)
  - AGITATION [None]
  - DELIRIUM [None]
  - DERMATITIS ALLERGIC [None]
  - DISORIENTATION [None]
  - DRUG ERUPTION [None]
  - DRUG INTERACTION [None]
  - SOMNOLENCE [None]
